FAERS Safety Report 10032088 (Version 5)
Quarter: 2014Q2

REPORT INFORMATION
  Report Type: Spontaneous
  Country: US (occurrence: US)
  Receive Date: 20140324
  Receipt Date: 20140523
  Transmission Date: 20141212
  Serious: Yes (Hospitalization, Other)
  Sender: FDA-Public Use
  Company Number: US-BAXTER-2014BAX014200

PATIENT
  Age: 67 Year
  Sex: Male
  Weight: 80.45 kg

DRUGS (2)
  1. DIANEAL LOW CALCIUM [Suspect]
     Indication: RENAL FAILURE CHRONIC
     Route: 033
     Dates: start: 2013
  2. DIANEAL LOW CALCIUM [Suspect]
     Indication: RENAL FAILURE CHRONIC
     Route: 033
     Dates: start: 2013

REACTIONS (6)
  - Myocardial infarction [Recovering/Resolving]
  - Multimorbidity [Unknown]
  - Oedema [Recovered/Resolved]
  - Pleural effusion [Recovering/Resolving]
  - Coronary artery occlusion [Unknown]
  - Ultrafiltration failure [Unknown]
